FAERS Safety Report 7637842 (Version 19)
Quarter: 2013Q4

REPORT INFORMATION
  Report Type: Report from Study
  Country: CA (occurrence: CA)
  Receive Date: 20101022
  Receipt Date: 20131111
  Transmission Date: 20140711
  Serious: Yes (Life-Threatening, Hospitalization, Other)
  Sender: FDA-Public Use
  Company Number: PHHY2010CA68802

PATIENT
  Age: 62 Year
  Sex: Male

DRUGS (8)
  1. SANDOSTATIN LAR [Suspect]
     Indication: METASTATIC CARCINOID TUMOUR
     Dosage: 20 MG, EVERY 4 WEEKS
     Route: 030
     Dates: start: 20091217, end: 20110912
  2. SANDOSTATIN LAR [Suspect]
     Dosage: 30 MG, QMO
     Route: 030
  3. SANDOSTATIN LAR [Suspect]
     Dosage: 30 MG, EVERY 4 WEEKS
     Route: 030
  4. SANDOSTATIN LAR [Suspect]
     Dosage: 30 MG, UNK
     Route: 030
     Dates: start: 20131001
  5. GABAPENTINE [Concomitant]
     Dosage: 300 UKN, TID
  6. MONOCOR [Concomitant]
     Dosage: 2.5 UKN, UNK
  7. SPIRONOLACTONE [Concomitant]
     Dosage: 37.5 UKN, UNK
  8. COUMADINE [Concomitant]
     Dosage: UNK UKN, UNK

REACTIONS (27)
  - Tricuspid valve incompetence [Unknown]
  - Atrial fibrillation [Unknown]
  - Intervertebral disc protrusion [Not Recovered/Not Resolved]
  - Groin pain [Unknown]
  - Arthralgia [Unknown]
  - Sciatica [Recovered/Resolved]
  - Tricuspid valve disease [Unknown]
  - Blood pressure decreased [Unknown]
  - Hernia [Unknown]
  - Heart rate decreased [Unknown]
  - Local swelling [Unknown]
  - Pain in extremity [Unknown]
  - Body temperature decreased [Unknown]
  - Fluid retention [Unknown]
  - Erythema [Not Recovered/Not Resolved]
  - Memory impairment [Unknown]
  - Disturbance in attention [Unknown]
  - Muscle spasms [Unknown]
  - Mobility decreased [Unknown]
  - Pollakiuria [Unknown]
  - Blood pressure fluctuation [Unknown]
  - Pruritus [Recovering/Resolving]
  - Acne [Recovering/Resolving]
  - Headache [Unknown]
  - Fatigue [Unknown]
  - Bowel movement irregularity [Unknown]
  - Drug effect decreased [Unknown]
